FAERS Safety Report 7487101-9 (Version None)
Quarter: 2011Q2

REPORT INFORMATION
  Report Type: 
  Country: None (occurrence: None)
  Receive Date: 20110509
  Receipt Date: 20110505
  Transmission Date: 20111010
  Serious: Yes (Life-Threatening, Hospitalization, Other)
  Sender: FDA-Public Use
  Company Number: 2010SP008444

PATIENT
  Age: 48 Year
  Sex: Male
  Weight: 65 kg

DRUGS (6)
  1. ACETAMINOPHEN [Suspect]
     Indication: PRODUCT USED FOR UNKNOWN INDICATION
     Dosage: 3000 MG;QW;PO
     Route: 048
     Dates: start: 20090501, end: 20091204
  2. UREA CORTISON OINTMENT [Concomitant]
  3. VIANI [Concomitant]
  4. L-THYROXINE HENNING [Concomitant]
  5. INTRON A [Suspect]
     Indication: MALIGNANT MELANOMA
     Dosage: 9 MIU;QW;SC
     Route: 058
     Dates: start: 20090501, end: 20091204
  6. MESALAMINE [Suspect]
     Indication: COLITIS
     Dosage: 1200 MG;QD;PO
     Route: 048
     Dates: start: 20091201, end: 20091208

REACTIONS (4)
  - COOMBS POSITIVE HAEMOLYTIC ANAEMIA [None]
  - DRUG INTERACTION [None]
  - TINNITUS [None]
  - GENERAL PHYSICAL HEALTH DETERIORATION [None]
